FAERS Safety Report 8788630 (Version 2)
Quarter: 2012Q4

REPORT INFORMATION
  Report Type: 
  Country: US (occurrence: US)
  Receive Date: 20120917
  Receipt Date: 20121111
  Transmission Date: 20130627
  Serious: No
  Sender: FDA-Public Use
  Company Number: US-009507513-1209USA003085

PATIENT
  Sex: Male
  Weight: 87.53 kg

DRUGS (3)
  1. VICTRELIS [Suspect]
     Indication: HEPATITIS C
     Dosage: 800 mg, tid
     Route: 048
     Dates: start: 201106
  2. RIBAVIRIN [Suspect]
     Dosage: 600 mg, qd
     Route: 048
  3. PEGASYS [Suspect]
     Dosage: 135 mg, qw
     Route: 058

REACTIONS (1)
  - Hepatitis C [Not Recovered/Not Resolved]
